FAERS Safety Report 23698936 (Version 1)
Quarter: 2024Q2

REPORT INFORMATION
  Report Type: Spontaneous
  Country: US (occurrence: None)
  Receive Date: 20240402
  Receipt Date: 20240402
  Transmission Date: 20240716
  Serious: Yes (Other)
  Sender: FDA-Public Use
  Company Number: 2024A077216

PATIENT
  Sex: Female

DRUGS (6)
  1. DURVALUMAB [Suspect]
     Active Substance: DURVALUMAB
  2. CISPLATIN [Suspect]
     Active Substance: CISPLATIN
  3. GEMCITABINE [Suspect]
     Active Substance: GEMCITABINE
  4. XALKORI [Suspect]
     Active Substance: CRIZOTINIB
     Dosage: CAP SPRINKLE
     Route: 048
  5. XALKORI [Suspect]
     Active Substance: CRIZOTINIB
     Dosage: 250.0MG UNKNOWN
     Route: 048
  6. CRIZOTINIB [Suspect]
     Active Substance: CRIZOTINIB
     Route: 048

REACTIONS (7)
  - Malignant neoplasm progression [Unknown]
  - Haemoglobin decreased [Unknown]
  - Fatigue [Unknown]
  - Dizziness [Unknown]
  - Appetite disorder [Unknown]
  - Asthenia [Unknown]
  - Weight decreased [Unknown]
